FAERS Safety Report 10838937 (Version 1)
Quarter: 2015Q1

REPORT INFORMATION
  Report Type: Report from Study
  Country: US (occurrence: US)
  Receive Date: 20150219
  Receipt Date: 20150219
  Transmission Date: 20150721
  Serious: Yes (Hospitalization)
  Sender: FDA-Public Use
  Company Number: US-ABBVIE-14P-163-1228423-00

PATIENT
  Sex: Male

DRUGS (6)
  1. CHOLESTEROL MED [Concomitant]
     Indication: BLOOD CHOLESTEROL INCREASED
  2. INSULIN [Concomitant]
     Active Substance: INSULIN NOS
     Indication: DIABETES MELLITUS
  3. HUMIRA [Suspect]
     Active Substance: ADALIMUMAB
     Dosage: SAMPLES
  4. HUMIRA [Suspect]
     Active Substance: ADALIMUMAB
     Dates: end: 201402
  5. HUMIRA [Suspect]
     Active Substance: ADALIMUMAB
     Indication: PSORIASIS
     Dates: start: 2008
  6. HIGH BLOOD PRESSURE MEDS [Concomitant]
     Indication: HYPERTENSION

REACTIONS (7)
  - Hypertension [Unknown]
  - Psoriasis [Not Recovered/Not Resolved]
  - Psoriasis [Not Recovered/Not Resolved]
  - Bronchitis [Unknown]
  - Chest pain [Unknown]
  - Dyspnoea [Unknown]
  - Pneumonia [Unknown]

NARRATIVE: CASE EVENT DATE: 2013
